FAERS Safety Report 5692956-4 (Version None)
Quarter: 2008Q2

REPORT INFORMATION
  Report Type: 
  Country: None (occurrence: None)
  Receive Date: 20080403
  Receipt Date: 20080326
  Transmission Date: 20081010
  Serious: Yes (Other)
  Sender: FDA-Public Use
  Company Number: US-JNJFOC-20070805836

PATIENT
  Sex: Female
  Weight: 72.58 kg

DRUGS (9)
  1. FENTANYL TRANSDERMAL SYSTEM [Suspect]
     Indication: BACK PAIN
     Route: 062
  2. FENTANYL TRANSDERMAL SYSTEM [Suspect]
     Indication: SPONDYLITIS
     Route: 062
  3. DURAGESIC-100 [Suspect]
     Indication: SPONDYLITIS
     Route: 062
  4. DURAGESIC-100 [Suspect]
     Indication: BACK PAIN
     Route: 062
  5. ASACOL [Concomitant]
     Indication: COLITIS
     Dosage: AS NEEDED
     Route: 048
  6. NORVASC [Concomitant]
     Indication: HYPERTENSION
     Route: 048
  7. ATENOLOL [Concomitant]
     Indication: HYPERTENSION
     Route: 048
  8. ASPIRIN [Concomitant]
     Route: 048
  9. PERCOCET [Concomitant]
     Indication: BREAKTHROUGH PAIN
     Dosage: EVERY 4-6 HOURS
     Route: 048

REACTIONS (7)
  - COLITIS ULCERATIVE [None]
  - GAIT DISTURBANCE [None]
  - HERPES ZOSTER [None]
  - INTERVERTEBRAL DISC COMPRESSION [None]
  - MUSCULAR WEAKNESS [None]
  - PNEUMONIA [None]
  - WRONG TECHNIQUE IN DRUG USAGE PROCESS [None]
